FAERS Safety Report 19059052 (Version 1)
Quarter: 2021Q1

REPORT INFORMATION
  Report Type: Spontaneous
  Country: IT (occurrence: IT)
  Receive Date: 20210325
  Receipt Date: 20210325
  Transmission Date: 20210420
  Serious: Yes (Hospitalization, Other)
  Sender: FDA-Public Use
  Company Number: IT-PFIZER INC-2004234222IT

PATIENT
  Age: 59 Year
  Sex: Female

DRUGS (14)
  1. MORPHINE [Suspect]
     Active Substance: MORPHINE
     Indication: PAIN MANAGEMENT
     Dosage: 900 MG, 1X/DAY
     Route: 048
  2. CLONAZEPAM. [Concomitant]
     Active Substance: CLONAZEPAM
  3. BUPIVACAINE HCL [Concomitant]
     Active Substance: BUPIVACAINE HYDROCHLORIDE
  4. KETAMINE [Concomitant]
     Active Substance: KETAMINE
  5. PILOCARPINE. [Concomitant]
     Active Substance: PILOCARPINE
  6. METHADONE HYDROCHLORIDE. [Suspect]
     Active Substance: METHADONE HYDROCHLORIDE
     Dosage: 40 MG, DAILY
  7. MORPHINE [Suspect]
     Active Substance: MORPHINE
     Dosage: 60 MG, 1X/DAY
     Route: 037
  8. MORPHINE [Suspect]
     Active Substance: MORPHINE
     Dosage: 50 MG, 1X/DAY
     Route: 037
  9. CLONIDINE. [Concomitant]
     Active Substance: CLONIDINE
  10. DEXAMETHASONE. [Concomitant]
     Active Substance: DEXAMETHASONE
  11. GABAPENTIN. [Suspect]
     Active Substance: GABAPENTIN
     Dosage: 900 MG, DAILY
  12. MORPHINE [Suspect]
     Active Substance: MORPHINE
     Dosage: 80 MG, 1X/DAY
     Route: 037
  13. MORPHINE [Suspect]
     Active Substance: MORPHINE
     Dosage: 50 MG, 1X/DAY
     Route: 037
  14. PROMAZINE [Concomitant]
     Active Substance: PROMAZINE

REACTIONS (6)
  - Agitation [Unknown]
  - Pain [Unknown]
  - Vomiting [Unknown]
  - Drug ineffective [Unknown]
  - Hallucination [Unknown]
  - Confusional state [Unknown]
